FAERS Safety Report 5519302-0 (Version None)
Quarter: 2007Q4

REPORT INFORMATION
  Report Type: 
  Country: None (occurrence: None)
  Receive Date: 20071114
  Receipt Date: 20071102
  Transmission Date: 20080405
  Serious: Yes (Hospitalization, Other)
  Sender: FDA-Public Use
  Company Number: 2005VX000588

PATIENT
  Age: 79 Year
  Sex: Male
  Weight: 52.2 kg

DRUGS (6)
  1. PERMAX [Suspect]
     Indication: PARKINSON'S DISEASE
     Dosage: 500 UG; QD; PO, 750 UG; QD; PO, 250 UG; BID; PO, 250 UG; TID; PO
     Route: 048
     Dates: end: 20050913
  2. PERMAX [Suspect]
     Indication: PARKINSON'S DISEASE
     Dosage: 500 UG; QD; PO, 750 UG; QD; PO, 250 UG; BID; PO, 250 UG; TID; PO
     Route: 048
     Dates: start: 20050914, end: 20051003
  3. PERMAX [Suspect]
     Indication: PARKINSON'S DISEASE
     Dosage: 500 UG; QD; PO, 750 UG; QD; PO, 250 UG; BID; PO, 250 UG; TID; PO
     Route: 048
     Dates: start: 20051004
  4. NEODOPASOL [Concomitant]
  5. RISPERIDINE [Concomitant]
  6. DOPS [Concomitant]

REACTIONS (6)
  - ALTERED STATE OF CONSCIOUSNESS [None]
  - DEHYDRATION [None]
  - HALLUCINATION, VISUAL [None]
  - NEUROLEPTIC MALIGNANT SYNDROME [None]
  - SOMNOLENCE [None]
  - WHITE BLOOD CELL COUNT INCREASED [None]
